FAERS Safety Report 5911669-4 (Version None)
Quarter: 2008Q4

REPORT INFORMATION
  Report Type: 
  Country: None (occurrence: None)
  Receive Date: 20081003
  Receipt Date: 20080924
  Transmission Date: 20090506
  Serious: Yes (Other)
  Sender: FDA-Public Use
  Company Number: 2008090041

PATIENT
  Sex: Female

DRUGS (1)
  1. SOMA [Suspect]
     Indication: MUSCLE RELAXANT THERAPY
     Dosage: (350 MG) ,ORAL
     Route: 048

REACTIONS (5)
  - APHASIA [None]
  - EYELID FUNCTION DISORDER [None]
  - IMPAIRED WORK ABILITY [None]
  - PARALYSIS [None]
  - SOMNOLENCE [None]
